FAERS Safety Report 7979427-7 (Version None)
Quarter: 2011Q4

REPORT INFORMATION
  Report Type: 
  Country: None (occurrence: None)
  Receive Date: 20111214
  Receipt Date: 20111129
  Transmission Date: 20120403
  Serious: Yes (Hospitalization, Other)
  Sender: FDA-Public Use
  Company Number: PHHY2011AU56065

PATIENT
  Sex: Male

DRUGS (3)
  1. EXJADE [Suspect]
     Indication: IRON OVERLOAD
     Dosage: 500 MG
     Route: 048
     Dates: start: 20091204
  2. ANTIBIOTICS [Concomitant]
     Dosage: UNK
  3. EXJADE [Suspect]
     Dosage: 1000 MG,

REACTIONS (2)
  - URINARY TRACT INFECTION [None]
  - PROSTATIC DISORDER [None]
